FAERS Safety Report 24550313 (Version 1)
Quarter: 2024Q4

REPORT INFORMATION
  Report Type: Spontaneous
  Country: US (occurrence: US)
  Receive Date: 20241025
  Receipt Date: 20241025
  Transmission Date: 20250115
  Serious: No
  Sender: SUNOVION
  Company Number: US-SUMITOMO PHARMA SWITZERLAND GMBH-2024SPA004062

PATIENT

DRUGS (1)
  1. GEMTESA [Suspect]
     Active Substance: VIBEGRON
     Indication: Urinary incontinence
     Dosage: 75 MG, QD (ONE PILL A DAY ON A REGULAR BASIS)
     Route: 048
     Dates: start: 20241010

REACTIONS (4)
  - Faeces hard [Unknown]
  - Brain fog [Unknown]
  - Hypoacusis [Unknown]
  - Dyschezia [Unknown]
